FAERS Safety Report 24976198 (Version 1)
Quarter: 2025Q1

REPORT INFORMATION
  Report Type: Report from Study
  Country: US (occurrence: None)
  Receive Date: 20250217
  Receipt Date: 20250217
  Transmission Date: 20250409
  Serious: No
  Sender: ALEXION PHARMACEUTICALS
  Company Number: US-AstraZeneca-2015SE71760

PATIENT
  Age: 76 Year
  Weight: 62.142 kg

DRUGS (2)
  1. NEXIUM [Suspect]
     Active Substance: ESOMEPRAZOLE MAGNESIUM
     Indication: Gastrooesophageal reflux disease
  2. BRILINTA [Suspect]
     Active Substance: TICAGRELOR
     Indication: Stent placement
     Dosage: 90 MILLIGRAM, BID

REACTIONS (6)
  - Abdominal discomfort [Unknown]
  - Taste disorder [Unknown]
  - Dyspepsia [Unknown]
  - Weight decreased [Unknown]
  - Hypophagia [Unknown]
  - Hypoacusis [Unknown]
